FAERS Safety Report 20964359 (Version 1)
Quarter: 2022Q2

REPORT INFORMATION
  Report Type: Spontaneous
  Country: CN (occurrence: CN)
  Receive Date: 20220615
  Receipt Date: 20220615
  Transmission Date: 20220720
  Serious: Yes (Other)
  Sender: FDA-Public Use
  Company Number: CN-PFIZER INC-PV202200002149

PATIENT
  Age: 3 Year
  Sex: Male
  Weight: 17.9 kg

DRUGS (3)
  1. CYTARABINE [Suspect]
     Active Substance: CYTARABINE
     Indication: Burkitt^s lymphoma
     Dosage: 34 MG, 1X/DAY
     Route: 041
     Dates: start: 20220603, end: 20220607
  2. CYTARABINE [Suspect]
     Active Substance: CYTARABINE
     Dosage: 2 G, 1X/DAY
     Route: 041
     Dates: start: 20220604, end: 20220607
  3. ETOPOSIDE [Concomitant]
     Active Substance: ETOPOSIDE
     Indication: Burkitt^s lymphoma
     Dosage: 138 MG, 1X/DAY
     Route: 041
     Dates: start: 20220604, end: 20220607

REACTIONS (2)
  - Rash pruritic [Recovering/Resolving]
  - Rash papular [Recovering/Resolving]

NARRATIVE: CASE EVENT DATE: 20220606
